FAERS Safety Report 4646658-3 (Version None)
Quarter: 2005Q2

REPORT INFORMATION
  Report Type: 
  Country: None (occurrence: None)
  Receive Date: 20050425
  Receipt Date: 20050412
  Transmission Date: 20051028
  Serious: Yes (Hospitalization)
  Sender: FDA-Public Use
  Company Number: 05P-163-0297149-00

PATIENT
  Age: 86 Year
  Sex: Female
  Weight: 62.5964 kg

DRUGS (8)
  1. SYNTHROID [Suspect]
     Indication: THYROID DISORDER
     Dosage: 112 MCG, 1 IN 1 D, PER ORAL
     Route: 048
     Dates: start: 20010621, end: 20050201
  2. LEVOTHYROXINE SODIUM [Suspect]
     Indication: THYROID DISORDER
     Dosage: 112 MCG, 1 IN 1 D, PER ORAL
     Route: 048
     Dates: start: 20050201
  3. BUMETANIDE [Concomitant]
  4. DIOVAN [Concomitant]
  5. DIGOXIN [Concomitant]
  6. ASPIRIN [Concomitant]
  7. INSULIN LISPRO [Concomitant]
  8. LANTIS [Concomitant]

REACTIONS (9)
  - DIZZINESS [None]
  - DYSPNOEA [None]
  - FALL [None]
  - LIP BLISTER [None]
  - MYALGIA [None]
  - RASH GENERALISED [None]
  - RASH PRURITIC [None]
  - SPINAL FRACTURE [None]
  - WEIGHT DECREASED [None]
